FAERS Safety Report 9500237 (Version 2)
Quarter: 2013Q4

REPORT INFORMATION
  Report Type: Spontaneous
  Country: US (occurrence: None)
  Receive Date: 20130903
  Receipt Date: 20131114
  Transmission Date: 20140711
  Serious: Yes (Hospitalization)
  Sender: FDA-Public Use
  Company Number: 2013SGN00501

PATIENT
  Age: 45 Year
  Sex: Female
  Weight: 57.6 kg

DRUGS (9)
  1. BRENTUXIMAB VEDOTIN [Suspect]
     Indication: NON-HODGKIN^S LYMPHOMA
     Route: 042
     Dates: start: 20130226, end: 20130813
  2. ALLOPURINOL [Concomitant]
  3. OXYCODONE (OXYCODONE) [Concomitant]
  4. FUROSEMIDE (FUROSEMIDE) [Concomitant]
  5. PROGRAF (TACROLIMUS) [Concomitant]
  6. VITAMIN D (VITAMIN D) [Concomitant]
  7. PREDNISONE (PREDNISONE ACETATE) [Concomitant]
  8. PRILOSEC [Concomitant]
  9. TYLENOL (PARACETAMOL) [Concomitant]

REACTIONS (3)
  - Dehydration [None]
  - Nausea [None]
  - Vomiting [None]
